FAERS Safety Report 24202620 (Version 2)
Quarter: 2024Q4

REPORT INFORMATION
  Report Type: Spontaneous
  Country: CA (occurrence: CA)
  Receive Date: 20240813
  Receipt Date: 20241017
  Transmission Date: 20250115
  Serious: Yes (Other)
  Sender: CELLTRION
  Company Number: CA-CELLTRION INC.-2023CA020860

PATIENT

DRUGS (1)
  1. YUFLYMA [Suspect]
     Active Substance: ADALIMUMAB-AATY
     Indication: Crohn^s disease
     Dosage: 40 MG (1 PEN) EVERY 2 WEEKS
     Route: 058

REACTIONS (5)
  - Hysterectomy [Unknown]
  - COVID-19 [Unknown]
  - Symptom recurrence [Unknown]
  - Malaise [Unknown]
  - Intentional dose omission [Unknown]
